FAERS Safety Report 4984101-5 (Version None)
Quarter: 2006Q1

REPORT INFORMATION
  Report Type: 
  Country: None (occurrence: None)
  Receive Date: 20060302
  Receipt Date: 20050721
  Transmission Date: 20060701
  Serious: Yes (Other)
  Sender: FDA-Public Use
  Company Number: 1881

PATIENT
  Age: 34 Year
  Sex: Female

DRUGS (2)
  1. TARGRETIN [Suspect]
     Indication: MYCOSIS FUNGOIDES
     Dosage: 525 MG DAILY PO
     Route: 048
     Dates: start: 20020201, end: 20040401
  2. TARGRETIN [Suspect]
     Indication: MYCOSIS FUNGOIDES
     Dosage: 525 MG DAILY PO
     Route: 048
     Dates: start: 20041001

REACTIONS (3)
  - HYPERLIPIDAEMIA [None]
  - HYPOTHYROIDISM [None]
  - LEUKOPENIA [None]
